FAERS Safety Report 21852938 (Version 2)
Quarter: 2023Q1

REPORT INFORMATION
  Report Type: Spontaneous
  Country: US (occurrence: US)
  Receive Date: 20230112
  Receipt Date: 20230112
  Transmission Date: 20230417
  Serious: Yes (Death, Life-Threatening, Other)
  Sender: FDA-Public Use
  Company Number: US-BRISTOL-MYERS SQUIBB COMPANY-2023-003900

PATIENT
  Age: 70 Year
  Sex: Female

DRUGS (2)
  1. THALOMID [Suspect]
     Active Substance: THALIDOMIDE
     Indication: Gastric antral vascular ectasia
     Dosage: FREQUENCY: 56
  2. THALOMID [Suspect]
     Active Substance: THALIDOMIDE
     Indication: Gastrointestinal angiodysplasia

REACTIONS (12)
  - Respiratory failure [Fatal]
  - Urosepsis [Fatal]
  - Renal failure [Fatal]
  - Hepatic failure [Fatal]
  - Non-alcoholic fatty liver [Unknown]
  - Hepatic cirrhosis [Unknown]
  - Hepatic cancer [Unknown]
  - Type 2 diabetes mellitus [Unknown]
  - Ascites [Unknown]
  - Hepatic encephalopathy [Unknown]
  - Off label use [Unknown]
  - Post procedural complication [Unknown]

NARRATIVE: CASE EVENT DATE: 20230103
